FAERS Safety Report 17390373 (Version 1)
Quarter: 2020Q1

REPORT INFORMATION
  Report Type: Spontaneous
  Country: FR (occurrence: FR)
  Receive Date: 20200207
  Receipt Date: 20200207
  Transmission Date: 20200409
  Serious: Yes (Hospitalization)
  Sender: FDA-Public Use
  Company Number: FR-ELI_LILLY_AND_COMPANY-FR202001012554

PATIENT
  Age: 21 Year
  Sex: Female
  Weight: 51 kg

DRUGS (2)
  1. PEMETREXED. [Suspect]
     Active Substance: PEMETREXED
     Indication: PERITONEAL MESOTHELIOMA MALIGNANT
     Dosage: 800 MG, UNKNOWN
     Route: 033
     Dates: start: 20191031, end: 20191031
  2. CISPLATINE [Suspect]
     Active Substance: CISPLATIN
     Indication: PERITONEAL MESOTHELIOMA MALIGNANT
     Dosage: 120 MG, UNKNOWN
     Route: 041
     Dates: start: 20191031, end: 20191031

REACTIONS (5)
  - Thrombocytopenia [Recovered/Resolved]
  - Diarrhoea [Recovered/Resolved]
  - Anaemia [Recovered/Resolved]
  - Mucosal inflammation [Recovered/Resolved]
  - Febrile bone marrow aplasia [Recovered/Resolved]

NARRATIVE: CASE EVENT DATE: 20191106
